FAERS Safety Report 20211554 (Version 2)
Quarter: 2022Q1

REPORT INFORMATION
  Report Type: Report from Study
  Country: US (occurrence: US)
  Receive Date: 20211221
  Receipt Date: 20220121
  Transmission Date: 20220423
  Serious: No
  Sender: FDA-Public Use
  Company Number: US-BIOVITRUM-2021US12140

PATIENT
  Age: 0 Year
  Sex: Male

DRUGS (5)
  1. SYNAGIS [Suspect]
     Active Substance: PALIVIZUMAB
     Indication: Antiviral prophylaxis
     Route: 030
  2. SYNAGIS [Suspect]
     Active Substance: PALIVIZUMAB
     Route: 030
  3. VITAMINS [Concomitant]
     Active Substance: VITAMINS
  4. SODIUM ACETATE [Concomitant]
     Active Substance: SODIUM ACETATE
  5. POTASSIUM [Concomitant]
     Active Substance: POTASSIUM

REACTIONS (4)
  - Cough [Unknown]
  - Rhinorrhoea [Unknown]
  - SARS-CoV-2 test positive [Unknown]
  - Pyrexia [Unknown]

NARRATIVE: CASE EVENT DATE: 20211208
